FAERS Safety Report 13502695 (Version 2)
Quarter: 2017Q2

REPORT INFORMATION
  Report Type: Spontaneous
  Country: US (occurrence: US)
  Receive Date: 20170502
  Receipt Date: 20170508
  Transmission Date: 20170830
  Serious: No
  Sender: FDA-Public Use
  Company Number: US-VERTEX PHARMACEUTICALS-2017-002338

PATIENT
  Sex: Male

DRUGS (11)
  1. AZITHROMYCIN ANHYDROUS. [Concomitant]
     Active Substance: AZITHROMYCIN ANHYDROUS
  2. ORKAMBI [Suspect]
     Active Substance: IVACAFTOR\LUMACAFTOR
     Indication: CYSTIC FIBROSIS
     Dosage: 2 DF (200/125 MG), BID
     Route: 048
     Dates: start: 20150825
  3. ALBUTEROL. [Concomitant]
     Active Substance: ALBUTEROL
  4. HYPERSAL [Concomitant]
  5. VITAMIN E [Concomitant]
     Active Substance: .ALPHA.-TOCOPHEROL
  6. CREON [Concomitant]
     Active Substance: PANCRELIPASE AMYLASE\PANCRELIPASE LIPASE\PANCRELIPASE PROTEASE
  7. PANTOPRAZOLE [Concomitant]
     Active Substance: PANTOPRAZOLE
  8. PULMOZYME [Concomitant]
     Active Substance: DORNASE ALFA
  9. CALCITRATE [Concomitant]
     Active Substance: CALCIUM CITRATE
  10. AQUADEKS [Concomitant]
     Active Substance: MINERALS\VITAMINS
  11. VITAMIN D [Concomitant]
     Active Substance: CHOLECALCIFEROL

REACTIONS (1)
  - Rhinorrhoea [Not Recovered/Not Resolved]
